FAERS Safety Report 13613383 (Version 1)
Quarter: 2017Q2

REPORT INFORMATION
  Report Type: Spontaneous
  Country: US (occurrence: US)
  Receive Date: 20170605
  Receipt Date: 20170605
  Transmission Date: 20170830
  Serious: No
  Sender: FDA-Public Use
  Company Number: US-ACTELION-A-NJ2017-154699

PATIENT
  Age: 8 Year
  Sex: Male
  Weight: 28.57 kg

DRUGS (3)
  1. REMODULIN [Concomitant]
     Active Substance: TREPROSTINIL
  2. TRACLEER [Suspect]
     Active Substance: BOSENTAN
     Indication: PULMONARY ARTERIAL HYPERTENSION
     Dosage: 62.5 MG, BID
     Route: 048
  3. WARFARIN [Concomitant]
     Active Substance: WARFARIN

REACTIONS (4)
  - Vomiting [Unknown]
  - Abdominal pain [Unknown]
  - Viral infection [Unknown]
  - Diarrhoea [Unknown]

NARRATIVE: CASE EVENT DATE: 20170523
